FAERS Safety Report 20757615 (Version 1)
Quarter: 2022Q2

REPORT INFORMATION
  Report Type: Spontaneous
  Country: US (occurrence: US)
  Receive Date: 20220427
  Receipt Date: 20220427
  Transmission Date: 20220720
  Serious: No
  Sender: FDA-Public Use
  Company Number: US-PFIZER INC-202101507920

PATIENT
  Age: 43 Year
  Sex: Female

DRUGS (2)
  1. AROMASIN [Suspect]
     Active Substance: EXEMESTANE
     Dosage: UNK
     Dates: start: 20190731, end: 20210714
  2. LEUPROLIDE ACETATE [Concomitant]
     Active Substance: LEUPROLIDE ACETATE
     Dosage: UNK
     Dates: start: 20190410, end: 20210120

REACTIONS (3)
  - Hot flush [Unknown]
  - Fatigue [Unknown]
  - Depression [Unknown]

NARRATIVE: CASE EVENT DATE: 20190731
